FAERS Safety Report 11914150 (Version 2)
Quarter: 2016Q1

REPORT INFORMATION
  Report Type: Report from Study
  Country: ES (occurrence: ES)
  Receive Date: 20160113
  Receipt Date: 20160129
  Transmission Date: 20160526
  Serious: Yes (Hospitalization, Other)
  Sender: FDA-Public Use
  Company Number: ES-ABBVIE-16P-144-1533538-00

PATIENT
  Age: 71 Year
  Sex: Female
  Weight: 63 kg

DRUGS (2)
  1. EXVIERA [Suspect]
     Active Substance: DASABUVIR
     Indication: HEPATITIS C
     Route: 048
     Dates: start: 20151103, end: 20160125
  2. VIEKIRAX [Suspect]
     Active Substance: OMBITASVIR\PARITAPREVIR\RITONAVIR
     Indication: HEPATITIS C
     Route: 048
     Dates: start: 20151103, end: 20160125

REACTIONS (4)
  - Limb discomfort [Not Recovered/Not Resolved]
  - Infection [Unknown]
  - Fatigue [Not Recovered/Not Resolved]
  - Anuria [Recovered/Resolved]

NARRATIVE: CASE EVENT DATE: 20151103
